FAERS Safety Report 23023826 (Version 1)
Quarter: 2023Q4

REPORT INFORMATION
  Report Type: Spontaneous
  Country: DE (occurrence: DE)
  Receive Date: 20231003
  Receipt Date: 20231003
  Transmission Date: 20240110
  Serious: Yes (Death, Hospitalization, Other)
  Sender: FDA-Public Use
  Company Number: DE-CELGENE-DEU-20211001205

PATIENT
  Age: 79 Year
  Sex: Male
  Weight: 91 kg

DRUGS (10)
  1. AZACITIDINE [Suspect]
     Active Substance: AZACITIDINE
     Indication: Myelodysplastic syndrome
     Dosage: 75 MG/M^2 7 DAYS WITHIN THE FIRST 9 CALENDAR DAYS OF EACH 28-DAY CYCLE, EVERY 1 DAYS
     Route: 058
     Dates: start: 20210913, end: 20210921
  2. VENETOCLAX [Suspect]
     Active Substance: VENETOCLAX
     Indication: Myelodysplastic syndrome
     Dosage: FREQUENCY TEXT: NOT PROVIDED
     Route: 048
     Dates: start: 20210913, end: 20210926
  3. CLOPIDOGREL [Concomitant]
     Active Substance: CLOPIDOGREL BISULFATE
     Indication: Coronary artery disease
     Dosage: 75 MILLIGRAM
     Route: 048
     Dates: start: 20210910
  4. CLOPIDOGREL [Concomitant]
     Active Substance: CLOPIDOGREL BISULFATE
     Dosage: 75 MILLIGRAM
     Route: 048
     Dates: start: 201807, end: 20210909
  5. TORSEMIDE [Concomitant]
     Active Substance: TORSEMIDE
     Indication: Coronary artery disease
     Dosage: 10 MILLIGRAM
     Route: 048
     Dates: start: 201807
  6. METOPROLOL TARTRATE [Concomitant]
     Active Substance: METOPROLOL TARTRATE
     Indication: Coronary artery disease
     Dosage: 47.5 MILLIGRAM
     Route: 048
     Dates: start: 201807
  7. METOPROLOL TARTRATE [Concomitant]
     Active Substance: METOPROLOL TARTRATE
     Dosage: 2 IN 1 D
     Route: 048
     Dates: start: 201807
  8. RAMIPRIL [Concomitant]
     Active Substance: RAMIPRIL
     Indication: Coronary artery disease
     Dosage: 5 MILLIGRAM
     Route: 048
     Dates: start: 201807
  9. RAMIPRIL [Concomitant]
     Active Substance: RAMIPRIL
     Route: 048
  10. ATORVASTATIN [Concomitant]
     Active Substance: ATORVASTATIN
     Indication: Coronary artery disease
     Dosage: 40 MILLIGRAM
     Route: 048
     Dates: start: 201807

REACTIONS (4)
  - Febrile neutropenia [Recovered/Resolved]
  - Pleural effusion [Unknown]
  - Urinary tract infection [Recovering/Resolving]
  - Malignant neoplasm progression [Fatal]

NARRATIVE: CASE EVENT DATE: 20210101
